FAERS Safety Report 12289561 (Version 1)
Quarter: 2016Q2

REPORT INFORMATION
  Report Type: Spontaneous
  Country: CN (occurrence: CN)
  Receive Date: 20160421
  Receipt Date: 20160421
  Transmission Date: 20160815
  Serious: Yes (Other)
  Sender: FDA-Public Use
  Company Number: CN-ASTELLAS-2016US015304

PATIENT
  Age: 60 Year
  Sex: Male

DRUGS (13)
  1. AVASTIN [Suspect]
     Active Substance: BEVACIZUMAB
     Route: 065
     Dates: start: 20160205, end: 20160205
  2. PEMETREXED [Concomitant]
     Active Substance: PEMETREXED
     Route: 065
     Dates: start: 20160115, end: 20160115
  3. PEMETREXED [Concomitant]
     Active Substance: PEMETREXED
     Route: 065
     Dates: start: 20160205, end: 20160205
  4. AVASTIN [Suspect]
     Active Substance: BEVACIZUMAB
     Route: 065
     Dates: start: 20160115, end: 20160115
  5. PEMETREXED [Concomitant]
     Active Substance: PEMETREXED
     Route: 065
     Dates: start: 20160226, end: 20160226
  6. TARCEVA [Suspect]
     Active Substance: ERLOTINIB HYDROCHLORIDE
     Indication: LUNG ADENOCARCINOMA STAGE IV
     Dosage: UNK UNK, UNKNOWN FREQ.
     Route: 065
     Dates: start: 20151111
  7. AVASTIN [Suspect]
     Active Substance: BEVACIZUMAB
     Indication: LUNG ADENOCARCINOMA STAGE IV
     Route: 065
     Dates: start: 20151210, end: 20151210
  8. NEDAPLATIN [Concomitant]
     Active Substance: NEDAPLATIN
     Indication: LUNG ADENOCARCINOMA STAGE IV
     Route: 065
     Dates: start: 20151210, end: 20151210
  9. AVASTIN [Suspect]
     Active Substance: BEVACIZUMAB
     Route: 065
     Dates: start: 20160226, end: 20160226
  10. PEMETREXED [Concomitant]
     Active Substance: PEMETREXED
     Indication: LUNG ADENOCARCINOMA STAGE IV
     Route: 065
     Dates: start: 20151210, end: 20151210
  11. NEDAPLATIN [Concomitant]
     Active Substance: NEDAPLATIN
     Route: 065
     Dates: start: 20160226, end: 20160226
  12. NEDAPLATIN [Concomitant]
     Active Substance: NEDAPLATIN
     Route: 065
     Dates: start: 20160205, end: 20160205
  13. NEDAPLATIN [Concomitant]
     Active Substance: NEDAPLATIN
     Route: 065
     Dates: start: 20160115, end: 20160115

REACTIONS (6)
  - Axillary pain [Unknown]
  - Pulmonary embolism [Unknown]
  - Pain in extremity [Unknown]
  - Hepatic pain [Unknown]
  - Peripheral nerve injury [Unknown]
  - Dermatitis [Unknown]

NARRATIVE: CASE EVENT DATE: 20160406
